FAERS Safety Report 16306342 (Version 3)
Quarter: 2021Q3

REPORT INFORMATION
  Report Type: Spontaneous
  Country: US (occurrence: US)
  Receive Date: 20190513
  Receipt Date: 20210720
  Transmission Date: 20211014
  Serious: Yes (Other)
  Sender: FDA-Public Use
  Company Number: US-ASTRAZENECA-2019SE66100

PATIENT
  Age: 18676 Day
  Sex: Female
  Weight: 121.6 kg

DRUGS (32)
  1. PRILOSEC [Suspect]
     Active Substance: OMEPRAZOLE MAGNESIUM
     Indication: GASTROOESOPHAGEAL REFLUX DISEASE
     Route: 048
     Dates: start: 1989, end: 20110421
  2. ACIPHEX [Suspect]
     Active Substance: RABEPRAZOLE SODIUM
     Indication: GASTROOESOPHAGEAL REFLUX DISEASE
     Route: 065
     Dates: start: 2007
  3. BENADRYL [Concomitant]
     Active Substance: DIPHENHYDRAMINE HYDROCHLORIDE
     Indication: HYPERSENSITIVITY
     Dates: start: 2000
  4. ZANTAC [Concomitant]
     Active Substance: RANITIDINE HYDROCHLORIDE
     Dosage: OTC
     Dates: start: 2017
  5. PROTONIX [Suspect]
     Active Substance: PANTOPRAZOLE SODIUM
     Indication: GASTROOESOPHAGEAL REFLUX DISEASE
     Route: 065
     Dates: start: 2000, end: 20110421
  6. DICLOFENAC [Concomitant]
     Active Substance: DICLOFENAC
     Indication: PAIN
     Dates: start: 20170303, end: 20170311
  7. AMITRIPTYLINE [Concomitant]
     Active Substance: AMITRIPTYLINE
     Indication: DEPRESSION
     Dates: start: 20160128, end: 20170117
  8. ASPIRIN. [Concomitant]
     Active Substance: ASPIRIN
     Indication: ANTICOAGULANT THERAPY
     Dates: start: 2015
  9. ZANTAC [Concomitant]
     Active Substance: RANITIDINE HYDROCHLORIDE
     Dates: start: 1980
  10. PRAVASTATIN. [Concomitant]
     Active Substance: PRAVASTATIN
     Dosage: AS NEEDED OTC
     Dates: start: 1986, end: 1988
  11. TYLENOL [Concomitant]
     Active Substance: ACETAMINOPHEN
     Indication: PAIN
     Dates: start: 2000
  12. LEVOXYL [Concomitant]
     Active Substance: LEVOTHYROXINE SODIUM
     Dosage: AS NEEDED OTC
     Dates: start: 1986, end: 1988
  13. ROSUVASTATIN. [Concomitant]
     Active Substance: ROSUVASTATIN
     Indication: LIPIDS ABNORMAL
     Dates: start: 20190625, end: 20190710
  14. HCTZ [Concomitant]
     Active Substance: HYDROCHLOROTHIAZIDE
     Indication: PAIN
     Dates: start: 20100715, end: 20100815
  15. ZANTAC [Concomitant]
     Active Substance: RANITIDINE HYDROCHLORIDE
     Dosage: GENERIC
     Dates: start: 2014
  16. PREVACID [Suspect]
     Active Substance: LANSOPRAZOLE
     Indication: GASTROOESOPHAGEAL REFLUX DISEASE
     Route: 065
     Dates: start: 1995, end: 20110421
  17. PRAVASTATIN. [Concomitant]
     Active Substance: PRAVASTATIN
     Indication: BLOOD CHOLESTEROL ABNORMAL
     Dates: start: 20150508, end: 20170702
  18. DOXYCYCLINE. [Concomitant]
     Active Substance: DOXYCYCLINE
     Indication: INFECTION
     Dates: start: 20180727, end: 20180806
  19. CELEBREX [Concomitant]
     Active Substance: CELECOXIB
     Indication: PAIN
     Dates: start: 20090506, end: 20090520
  20. PERMETHRIN. [Concomitant]
     Active Substance: PERMETHRIN
     Dosage: AS NEEDED OTC
     Dates: start: 1986, end: 1988
  21. SPIRONOLACTONE. [Concomitant]
     Active Substance: SPIRONOLACTONE
     Dosage: AS NEEDED OTC
     Dates: start: 1986, end: 1988
  22. FUROSEMIDE. [Concomitant]
     Active Substance: FUROSEMIDE
     Indication: NEPHROPATHY
     Dates: start: 20190509, end: 20190809
  23. PEPCID [Concomitant]
     Active Substance: FAMOTIDINE
  24. CIPROFLOXACIN. [Concomitant]
     Active Substance: CIPROFLOXACIN
     Indication: INFECTION
     Dates: start: 20150227, end: 20150810
  25. TYLENOL [Concomitant]
     Active Substance: ACETAMINOPHEN
     Indication: HEADACHE
     Dates: start: 2000
  26. IBUPROFEN. [Concomitant]
     Active Substance: IBUPROFEN
     Indication: PAIN
     Dates: start: 2000
  27. VITAMIN D3 [Concomitant]
     Active Substance: CHOLECALCIFEROL
     Indication: BONE DISORDER
     Dates: start: 2018
  28. ZOLPIDEM [Concomitant]
     Active Substance: ZOLPIDEM TARTRATE
     Dosage: AS NEEDED OTC
     Dates: start: 1986, end: 1988
  29. NEXIUM [Suspect]
     Active Substance: ESOMEPRAZOLE MAGNESIUM
     Indication: GASTROOESOPHAGEAL REFLUX DISEASE
     Route: 048
     Dates: start: 2001, end: 20110421
  30. ROLAIDS [Concomitant]
     Active Substance: CALCIUM CARBONATE\MAGNESIUM HYDROXIDE
     Dosage: AS NEEDED OTC
     Dates: start: 1986, end: 1988
  31. TRIAMCINOLONE [Concomitant]
     Active Substance: TRIAMCINOLONE
     Dosage: AS NEEDED OTC
     Dates: start: 1986, end: 1988
  32. ESTRADIOL. [Concomitant]
     Active Substance: ESTRADIOL
     Dosage: AS NEEDED OTC
     Dates: start: 1986, end: 1988

REACTIONS (2)
  - Acute kidney injury [Unknown]
  - Chronic kidney disease [Not Recovered/Not Resolved]

NARRATIVE: CASE EVENT DATE: 20060731
